FAERS Safety Report 5564775-0 (Version None)
Quarter: 2007Q4

REPORT INFORMATION
  Report Type: 
  Country: None (occurrence: None)
  Receive Date: 20071213
  Receipt Date: 20071213
  Transmission Date: 20080405
  Serious: Yes (Life-Threatening, Hospitalization)
  Sender: FDA-Public Use
  Company Number: None

PATIENT
  Age: 12 Year
  Sex: Male
  Weight: 52.1637 kg

DRUGS (1)
  1. ZITHROMAX [Suspect]
     Indication: BRONCHITIS
     Dates: start: 20071106, end: 20071111

REACTIONS (6)
  - ASTHENIA [None]
  - EYE DISORDER [None]
  - LIVER DISORDER [None]
  - PHOTOPHOBIA [None]
  - RENAL DISORDER [None]
  - STEVENS-JOHNSON SYNDROME [None]
